FAERS Safety Report 7517070-4 (Version None)
Quarter: 2011Q2

REPORT INFORMATION
  Report Type: 
  Country: None (occurrence: None)
  Receive Date: 20110503
  Receipt Date: 20100512
  Transmission Date: 20111010
  Serious: Yes (Death)
  Sender: FDA-Public Use
  Company Number: KV200900619

PATIENT
  Age: 77 Year
  Sex: Male
  Weight: 92.5 kg

DRUGS (22)
  1. POTASSIUM CHLORIDE [Concomitant]
  2. METAMUCIL /00029101/ (PLANTAGO OVATA) [Concomitant]
  3. METOPROLOL TARTRATE [Concomitant]
  4. LASIX [Concomitant]
  5. MILK OF MAGNESIA TAB [Concomitant]
  6. WARFARIN SODIUM [Concomitant]
  7. SENNOSIDE /00571902/ (SENNOSIDE A+B CALCIUM) [Concomitant]
  8. VICOPROFEN [Concomitant]
  9. CARDURA /00639301/ (DOXAZOSIN) [Concomitant]
  10. ASPIRIN [Concomitant]
  11. ISOSORBIDE MONONITRATE [Suspect]
     Indication: PRODUCT USED FOR UNKNOWN INDICATION
     Dosage: 60 MG, BID, ORAL
     Route: 048
     Dates: start: 20081103, end: 20081113
  12. SPIRONOLACTONE [Concomitant]
  13. MORPHINE [Concomitant]
  14. ATIVAN [Concomitant]
  15. LORTAB [Concomitant]
  16. NITROGLYCERIN [Concomitant]
  17. ULTRAM [Concomitant]
  18. MELATONIN (MELATONIN) [Concomitant]
  19. BEANO (ALPHA-D-GALACTOSIDASE) [Concomitant]
  20. MULTIVITAMIN AND MINERAL SUPPLEMENT (MINERALS NOS, VITAMINS NOS) [Concomitant]
  21. OXYGEN (OXYGEN) [Concomitant]
  22. ALBUTEROL [Concomitant]

REACTIONS (6)
  - ASTHENIA [None]
  - CONDITION AGGRAVATED [None]
  - DYSPNOEA [None]
  - OEDEMA PERIPHERAL [None]
  - ANXIETY [None]
  - JUGULAR VEIN DISTENSION [None]
